FAERS Safety Report 9335463 (Version 1)
Quarter: 2013Q2

REPORT INFORMATION
  Report Type: Report from Study
  Country: NL (occurrence: NL)
  Receive Date: 20130606
  Receipt Date: 20130606
  Transmission Date: 20140414
  Serious: Yes (Death)
  Sender: FDA-Public Use
  Company Number: NL-ROCHE-1232860

PATIENT
  Sex: Male

DRUGS (1)
  1. MIRCERA [Suspect]
     Indication: PRODUCT USED FOR UNKNOWN INDICATION
     Dosage: 100 INJECTION FLUID 333UG/ML WWSP 0.3ML
     Route: 058
     Dates: start: 20100402, end: 20111003

REACTIONS (1)
  - Death [Fatal]
